FAERS Safety Report 7630259-9 (Version None)
Quarter: 2011Q3

REPORT INFORMATION
  Report Type: 
  Country: None (occurrence: None)
  Receive Date: 20110722
  Receipt Date: 20110712
  Transmission Date: 20111222
  Serious: Yes (Hospitalization)
  Sender: FDA-Public Use
  Company Number: PHHO2011JP12062

PATIENT
  Sex: Male
  Weight: 15 kg

DRUGS (6)
  1. ILARIS [Suspect]
     Indication: CHRONIC INFANTILE NEUROLOGICAL CUTANEOUS AND ARTICULAR SYNDROME
     Dosage: 26 MG, UNK
     Route: 058
     Dates: start: 20100106
  2. FLUTICASONE FUROATE [Concomitant]
  3. NAPROXEN [Concomitant]
     Indication: CHRONIC INFANTILE NEUROLOGICAL CUTANEOUS AND ARTICULAR SYNDROME
     Dosage: 480 MG, UNK
     Route: 048
     Dates: start: 20100802
  4. SULFAMETHOXAZOLE AND TRIMETHOPRIM [Concomitant]
     Indication: INFECTION PROPHYLAXIS
     Dosage: 1.2 G, UNK
     Route: 048
     Dates: start: 20100115
  5. ONON [Concomitant]
     Indication: RHINITIS ALLERGIC
     Dosage: 200 MG, UNK
     Route: 048
     Dates: start: 20110524
  6. ILARIS [Suspect]
     Dosage: 31 MG, UNK
     Route: 058
     Dates: start: 20110524

REACTIONS (1)
  - UPPER RESPIRATORY TRACT INFECTION [None]
